FAERS Safety Report 7132025-X (Version None)
Quarter: 2010Q4

REPORT INFORMATION
  Report Type: 
  Country: None (occurrence: None)
  Receive Date: 20101202
  Receipt Date: 20101124
  Transmission Date: 20110411
  Serious: Yes (Hospitalization)
  Sender: FDA-Public Use
  Company Number: DE-SANOFI-AVENTIS-200910515DE

PATIENT
  Age: 74 Year
  Sex: Male
  Weight: 65.5 kg

DRUGS (8)
  1. CLEXANE [Suspect]
     Indication: ATRIAL FIBRILLATION
     Dosage: DOSE AS USED: 2X0.6 MLDOSE UNIT: .6 ML
     Route: 058
     Dates: start: 20080630
  2. ENALAPRIL [Suspect]
     Dosage: DOSE AS USED: 1-0-1/2 DOSE UNIT: 5 MG
     Route: 048
     Dates: start: 20080630
  3. XIPAMIDE [Suspect]
     Dosage: DOSE AS USED: 10 MG ORAL 2 IN DAY  MG
     Route: 048
     Dates: start: 20080630, end: 20080722
  4. TORASEMIDE [Suspect]
     Dosage: DOSE AS USED: 10 MG, 5 MG
     Route: 048
     Dates: start: 20080630
  5. THEOPHYLLINE [Concomitant]
     Indication: CHRONIC OBSTRUCTIVE PULMONARY DISEASE
     Dosage: DOSE AS USED: 200 MG, 2 IN DAY DOSE UNIT: 200 MG
     Route: 048
     Dates: start: 20000101
  6. URBASON [Concomitant]
     Indication: CHRONIC OBSTRUCTIVE PULMONARY DISEASE
     Dosage: DOSE UNIT: 10 MG
     Route: 048
     Dates: start: 20080630
  7. SPIRIVA [Concomitant]
     Indication: CHRONIC OBSTRUCTIVE PULMONARY DISEASE
     Route: 055
     Dates: start: 20000101
  8. VIANI [Concomitant]
     Indication: CHRONIC OBSTRUCTIVE PULMONARY DISEASE
     Dosage: DOSE AS USED: 1 DF DOSAGE FORM
     Route: 055
     Dates: start: 20000101

REACTIONS (2)
  - HAEMATOMA [None]
  - RENAL FAILURE [None]
